FAERS Safety Report 7600394-X (Version None)
Quarter: 2011Q3

REPORT INFORMATION
  Report Type: 
  Country: None (occurrence: None)
  Receive Date: 20110711
  Receipt Date: 20110629
  Transmission Date: 20111222
  Serious: Yes (Other)
  Sender: FDA-Public Use
  Company Number: US-ELI_LILLY_AND_COMPANY-US201107001118

PATIENT
  Sex: Female

DRUGS (5)
  1. BILBERRY [Concomitant]
  2. EVISTA [Suspect]
     Indication: OSTEOPOROSIS
     Dosage: 60 MG, QD
  3. FORTEO [Suspect]
     Indication: OSTEOPOROSIS
     Dosage: 20 UG, QD
  4. VITAMIN E [Concomitant]
  5. VITAMIN D [Concomitant]

REACTIONS (12)
  - INCREASED UPPER AIRWAY SECRETION [None]
  - HEADACHE [None]
  - ARTHRALGIA [None]
  - MULTIPLE ALLERGIES [None]
  - INJECTION SITE PAIN [None]
  - DRUG INTERACTION [None]
  - DRUG INEFFECTIVE [None]
  - FALL [None]
  - HEART RATE INCREASED [None]
  - COUGH [None]
  - PELVIC FRACTURE [None]
  - ABDOMINAL PAIN UPPER [None]
